FAERS Safety Report 14755958 (Version 3)
Quarter: 2018Q2

REPORT INFORMATION
  Report Type: Spontaneous
  Country: US (occurrence: US)
  Receive Date: 20180413
  Receipt Date: 20180521
  Transmission Date: 20180711
  Serious: No
  Sender: FDA-Public Use
  Company Number: US-PFIZER INC-2018150640

PATIENT
  Age: 76 Year
  Sex: Female

DRUGS (1)
  1. XELJANZ XR [Suspect]
     Active Substance: TOFACITINIB CITRATE
     Dosage: 11 MG, UNK

REACTIONS (5)
  - Rash [Unknown]
  - Nasal congestion [Unknown]
  - Fungal infection [Unknown]
  - Anaemia [Unknown]
  - Colitis [Unknown]

NARRATIVE: CASE EVENT DATE: 20180411
